FAERS Safety Report 7658913-3 (Version None)
Quarter: 2011Q3

REPORT INFORMATION
  Report Type: 
  Country: None (occurrence: None)
  Receive Date: 20110805
  Receipt Date: 20090602
  Transmission Date: 20111222
  Serious: Yes (Hospitalization, Disabling)
  Sender: FDA-Public Use
  Company Number: US-BAYER-200818658NA

PATIENT
  Age: 47 Year
  Sex: Male
  Weight: 100.91 kg

DRUGS (48)
  1. PROGRAF [Concomitant]
     Route: 048
  2. PROGRAF [Concomitant]
     Route: 048
  3. CELLCEPT [Concomitant]
     Dosage: 500 MG 2 TAB BID
     Route: 048
  4. LASIX [Concomitant]
     Route: 042
  5. VICODIN [Concomitant]
     Dosage: 10/325 2 TABS TID PRN
     Route: 048
  6. MAGNEVIST [Suspect]
     Indication: ANGIOGRAM
     Dates: start: 20050923, end: 20050923
  7. LEXAPRO [Concomitant]
     Route: 048
  8. ELAVIL [Concomitant]
  9. NEURONTIN [Concomitant]
     Route: 048
  10. RENAGEL [Concomitant]
  11. TRACLEER [Concomitant]
     Indication: PULMONARY HYPERTENSION
  12. AVALIDE [Concomitant]
  13. VALCYTE [Concomitant]
     Route: 048
  14. OXYCODONE HCL [Concomitant]
     Route: 048
  15. COREG [Concomitant]
  16. MAGNEVIST [Suspect]
     Indication: RENAL TRANSPLANT
  17. OMNISCAN [Suspect]
  18. PROHANCE [Suspect]
  19. BIOTIN [Concomitant]
  20. VERELAN [Concomitant]
  21. MAGNEVIST [Suspect]
     Indication: NUCLEAR MAGNETIC RESONANCE IMAGING BRAIN
     Dates: start: 20050316, end: 20050316
  22. ROCEPHIN [Concomitant]
  23. PROGRAF [Concomitant]
     Route: 048
  24. SENNA [SENNA ALEXANDRINA] [Concomitant]
     Route: 048
  25. LASIX [Concomitant]
     Route: 048
  26. GANCICLOVIR [Concomitant]
     Indication: INFECTION PROPHYLAXIS
  27. SEPTRA [Concomitant]
  28. SENSIPAR [Concomitant]
     Dosage: 60 MG (DAILY DOSE), , ORAL
     Route: 048
     Dates: start: 20080923
  29. LANTUS [Concomitant]
     Indication: DIABETES MELLITUS
  30. MULTIHANCE [Suspect]
  31. LEXAPRO [Concomitant]
     Route: 048
  32. ELAVIL [Concomitant]
     Route: 048
  33. GABAPENTIN [Concomitant]
     Route: 048
  34. CHLORTHALIDONE [Concomitant]
  35. OPTIMARK [Suspect]
  36. REGLAN [Concomitant]
     Route: 048
  37. MAGNESIUM [Concomitant]
     Dosage: 400 MG 2 TAB BID
     Route: 048
  38. HYDROCODONE [Concomitant]
     Dosage: 10 MG 2 TAB TID TO QID PRN
     Route: 048
  39. AZITHROMYCIN [Concomitant]
  40. ARANESP [Concomitant]
     Indication: ANAEMIA
     Dosage: 210 ?G (DAILY DOSE), , INTRAVENOUS
     Route: 042
  41. FERRLECIT [Concomitant]
     Indication: MINERAL SUPPLEMENTATION
  42. CONTRAST MEDIA [Suspect]
     Indication: COMPUTERISED TOMOGRAM
     Dosage: UNK
     Dates: start: 20050414, end: 20050414
  43. PROTONIX [Concomitant]
     Route: 048
  44. PRAVASTATIN [Concomitant]
  45. GLIPIZIDE [Concomitant]
  46. POTASSIUM PHOSPHATES [Concomitant]
     Dosage: 1 TAB
     Route: 048
  47. ZEMPLAR [Concomitant]
     Dosage: 6 ?G (DAILY DOSE), , INTRAVENOUS
     Route: 042
  48. NOVOLOG [Concomitant]

REACTIONS (41)
  - JOINT STIFFNESS [None]
  - LIMB DISCOMFORT [None]
  - NEUROPATHY PERIPHERAL [None]
  - NEPHROGENIC SYSTEMIC FIBROSIS [None]
  - SKIN INDURATION [None]
  - OEDEMA PERIPHERAL [None]
  - ANXIETY [None]
  - BURNING SENSATION [None]
  - MYOPATHY [None]
  - INJURY [None]
  - SCAR [None]
  - MUSCULOSKELETAL STIFFNESS [None]
  - SKIN HYPERTROPHY [None]
  - MUSCLE FIBROSIS [None]
  - DRY SKIN [None]
  - PARAESTHESIA [None]
  - MUSCULAR WEAKNESS [None]
  - MYALGIA [None]
  - PULMONARY HYPERTENSION [None]
  - ANHEDONIA [None]
  - JOINT RANGE OF MOTION DECREASED [None]
  - SKIN ULCER [None]
  - MOBILITY DECREASED [None]
  - LICHENIFICATION [None]
  - EXCORIATION [None]
  - DYSPNOEA [None]
  - ABASIA [None]
  - EXTREMITY CONTRACTURE [None]
  - SKIN TIGHTNESS [None]
  - EMOTIONAL DISTRESS [None]
  - PAIN IN EXTREMITY [None]
  - PULMONARY FIBROSIS [None]
  - LUNG DISORDER [None]
  - OEDEMA [None]
  - BALANCE DISORDER [None]
  - PAIN [None]
  - PRURITUS GENERALISED [None]
  - INSOMNIA [None]
  - SKIN LESION [None]
  - ERYTHEMA [None]
  - ARTHRALGIA [None]
